FAERS Safety Report 5322486-0 (Version None)
Quarter: 2007Q2

REPORT INFORMATION
  Report Type: 
  Country: None (occurrence: None)
  Receive Date: 20070511
  Receipt Date: 20070503
  Transmission Date: 20071010
  Serious: Yes (Hospitalization)
  Sender: FDA-Public Use
  Company Number: FR-PURDUE-GBR_2007_0002983

PATIENT
  Age: 35 Year
  Sex: Female

DRUGS (2)
  1. MORPHINE SULFATE [Suspect]
     Indication: DRUG USE FOR UNKNOWN INDICATION
     Dosage: 2 DF, SINGLE
     Route: 048
     Dates: end: 20040807
  2. LEXOMIL [Suspect]
     Indication: DRUG USE FOR UNKNOWN INDICATION
     Dosage: UNK, UNK
     Route: 048
     Dates: end: 20040808

REACTIONS (6)
  - AGITATION [None]
  - ANAPHYLACTIC SHOCK [None]
  - CHILLS [None]
  - INTENTIONAL OVERDOSE [None]
  - RASH [None]
  - SOMNOLENCE [None]
